FAERS Safety Report 10688271 (Version 2)
Quarter: 2015Q1

REPORT INFORMATION
  Report Type: Spontaneous
  Country: US (occurrence: None)
  Receive Date: 20141231
  Receipt Date: 20150115
  Transmission Date: 20150720
  Serious: Yes (Other)
  Sender: FDA-Public Use
  Company Number: 2014VER00361

PATIENT
  Age: 16 Year
  Sex: Male

DRUGS (4)
  1. ZENATANE [Suspect]
     Active Substance: ISOTRETINOIN
     Dates: start: 2014, end: 2014
  2. MYORISAN [Suspect]
     Active Substance: ISOTRETINOIN
     Indication: ACNE
     Route: 048
     Dates: start: 2014, end: 2014
  3. ZENATANE [Suspect]
     Active Substance: ISOTRETINOIN
     Dates: start: 2014, end: 2014
  4. MYORISAN [Suspect]
     Active Substance: ISOTRETINOIN
     Route: 048
     Dates: start: 2014, end: 2014

REACTIONS (2)
  - Mood swings [None]
  - Irritability [None]

NARRATIVE: CASE EVENT DATE: 2014
